FAERS Safety Report 15532462 (Version 1)
Quarter: 2018Q4

REPORT INFORMATION
  Report Type: Spontaneous
  Country: BR (occurrence: BR)
  Receive Date: 20181019
  Receipt Date: 20181019
  Transmission Date: 20190205
  Serious: Yes (Other)
  Sender: FDA-Public Use
  Company Number: BR-BAYER-2018-189748

PATIENT
  Age: 62 Year
  Sex: Female

DRUGS (9)
  1. ASPIRINA 100 MG [Suspect]
     Active Substance: ASPIRIN
     Indication: THROMBOSIS PROPHYLAXIS
     Dosage: 1 DF, AFTER LUNCH
     Dates: start: 201710
  2. LEVOTHYROXIN [Concomitant]
     Active Substance: LEVOTHYROXINE
     Indication: BLOOD CHOLESTEROL ABNORMAL
  3. TENOFOVIR [Concomitant]
     Active Substance: TENOFOVIR
     Indication: HIV INFECTION
     Route: 048
  4. CLOPIDOGREL [Concomitant]
     Active Substance: CLOPIDOGREL BISULFATE
     Indication: CEREBROVASCULAR ACCIDENT PROPHYLAXIS
  5. LAMIVUDINE. [Concomitant]
     Active Substance: LAMIVUDINE
     Indication: HIV INFECTION
     Route: 048
  6. LEVOTHYROXIN [Concomitant]
     Active Substance: LEVOTHYROXINE
     Indication: BLOOD CHOLESTEROL ABNORMAL
  7. CILOSTAZOL. [Suspect]
     Active Substance: CILOSTAZOL
     Dosage: UNK
     Dates: start: 20181010
  8. CEBRALAT [Suspect]
     Active Substance: CILOSTAZOL
  9. ATENOLOL. [Concomitant]
     Active Substance: ATENOLOL
     Indication: HYPERTENSION

REACTIONS (6)
  - Headache [Recovering/Resolving]
  - Pain in extremity [Recovering/Resolving]
  - Labelled drug-drug interaction medication error [None]
  - Thrombosis [Not Recovered/Not Resolved]
  - Dizziness [Recovering/Resolving]
  - Physical product label issue [None]

NARRATIVE: CASE EVENT DATE: 201809
